FAERS Safety Report 9558887 (Version 3)
Quarter: 2013Q4

REPORT INFORMATION
  Report Type: Report from Study
  Country: PL (occurrence: PL)
  Receive Date: 20130927
  Receipt Date: 20131108
  Transmission Date: 20140711
  Serious: Yes (Hospitalization)
  Sender: FDA-Public Use
  Company Number: PL-PFIZER INC-2013266545

PATIENT
  Age: 61 Year
  Sex: Female
  Weight: 101 kg

DRUGS (6)
  1. TOFACITINIB CITRATE [Suspect]
     Indication: RHEUMATOID ARTHRITIS
     Dosage: 10 MG, 2X/DAY
     Route: 048
     Dates: start: 20101126
  2. KETONAL DUO [Suspect]
     Indication: RHEUMATOID ARTHRITIS
     Dosage: 150 MG, AS NEEDED
     Route: 048
     Dates: start: 200907
  3. LOSARTAN POTASSIUM [Concomitant]
     Indication: HYPERTENSION
     Dosage: 50 MG, 1X/DAY
     Route: 048
     Dates: start: 20091221
  4. RAWEL [Concomitant]
     Indication: HYPERTENSION
     Dosage: 1.5 MG, 1X/DAY
     Route: 048
     Dates: start: 20091221
  5. TRAMAL [Concomitant]
     Indication: RHEUMATOID ARTHRITIS
     Dosage: 100 MG, AS NEEDED
     Route: 048
     Dates: start: 200907
  6. IPP [Concomitant]
     Indication: ABDOMINAL RIGIDITY
     Dosage: 20 MG, 1X/DAY
     Route: 048

REACTIONS (1)
  - Red blood cell sedimentation rate increased [Not Recovered/Not Resolved]
